FAERS Safety Report 22923311 (Version 2)
Quarter: 2023Q4

REPORT INFORMATION
  Report Type: Spontaneous
  Country: KR (occurrence: KR)
  Receive Date: 20230908
  Receipt Date: 20231010
  Transmission Date: 20240110
  Serious: Yes (Other)
  Sender: FDA-Public Use
  Company Number: KR-ROCHE-3330992

PATIENT
  Age: 63 Year

DRUGS (12)
  1. CLONAZEPAM [Suspect]
     Active Substance: CLONAZEPAM
     Indication: Product used for unknown indication
  2. ERLOTINIB [Suspect]
     Active Substance: ERLOTINIB
     Indication: Oesophageal carcinoma
     Dosage: DAILY DOSE: 150 MILLIGRAM
     Route: 048
     Dates: start: 20230310
  3. ERLOTINIB [Suspect]
     Active Substance: ERLOTINIB
     Indication: Oesophageal carcinoma
     Dates: start: 20230801
  4. BEVACIZUMAB [Suspect]
     Active Substance: BEVACIZUMAB
     Indication: Oesophageal carcinoma
     Dosage: DAILY DOSE: 1100 MILLIGRAM
     Route: 042
     Dates: start: 20230309, end: 20230309
  5. BEVACIZUMAB [Suspect]
     Active Substance: BEVACIZUMAB
     Indication: Oesophageal carcinoma
     Dosage: DAILY DOSE: 1100 MILLIGRAM
     Route: 042
     Dates: start: 20230331, end: 20230331
  6. BEVACIZUMAB [Suspect]
     Active Substance: BEVACIZUMAB
     Indication: Oesophageal carcinoma
     Dosage: DAILY DOSE: 1100 MILLIGRAM
     Route: 042
     Dates: start: 20230421, end: 20230421
  7. BEVACIZUMAB [Suspect]
     Active Substance: BEVACIZUMAB
     Indication: Oesophageal carcinoma
     Dosage: DAILY DOSE: 1100 MILLIGRAM
     Route: 042
     Dates: start: 20230511, end: 20230511
  8. BEVACIZUMAB [Suspect]
     Active Substance: BEVACIZUMAB
     Indication: Oesophageal carcinoma
     Dosage: DAILY DOSE: 1000 MILLIGRAM
     Route: 042
     Dates: start: 20230531, end: 20230531
  9. BEVACIZUMAB [Suspect]
     Active Substance: BEVACIZUMAB
     Indication: Oesophageal carcinoma
     Dosage: DAILY DOSE: 1000 MILLIGRAM
     Route: 042
     Dates: start: 20230622, end: 20230622
  10. BEVACIZUMAB [Suspect]
     Active Substance: BEVACIZUMAB
     Indication: Oesophageal carcinoma
     Dosage: LAST DOSE DATE OF SUSPECTED DRUG: 13/JUN/2023?DAILY DOSE: 1000 MILLIGRAM
     Route: 042
     Dates: start: 20230713
  11. ACYCLOVIR [Suspect]
     Active Substance: ACYCLOVIR
     Indication: Product used for unknown indication
  12. TEGOPRAZAN [Suspect]
     Active Substance: TEGOPRAZAN
     Indication: Product used for unknown indication
     Route: 048

REACTIONS (13)
  - Radiation pneumonitis [Not Recovered/Not Resolved]
  - Melaena [Recovered/Resolved]
  - Dermatitis acneiform [Recovered/Resolved]
  - Palmar-plantar erythrodysaesthesia syndrome [Not Recovered/Not Resolved]
  - Paronychia [Not Recovered/Not Resolved]
  - Tremor [Recovered/Resolved]
  - Herpes zoster [Recovered/Resolved]
  - Rash [Recovered/Resolved]
  - Haemorrhoidal haemorrhage [Not Recovered/Not Resolved]
  - Abdominal pain [Not Recovered/Not Resolved]
  - Dysphonia [Not Recovered/Not Resolved]
  - Oedema peripheral [Recovered/Resolved]
  - Pain in extremity [Recovered/Resolved]

NARRATIVE: CASE EVENT DATE: 20230318
